FAERS Safety Report 15498255 (Version 2)
Quarter: 2018Q4

REPORT INFORMATION
  Report Type: Spontaneous
  Country: AU (occurrence: AU)
  Receive Date: 20181015
  Receipt Date: 20181018
  Transmission Date: 20190205
  Serious: Yes (Death, Hospitalization, Other)
  Sender: FDA-Public Use
  Company Number: AU-AMGEN-AUSSP2018142146

PATIENT
  Age: 65 Year
  Sex: Male

DRUGS (8)
  1. REPATHA [Suspect]
     Active Substance: EVOLOCUMAB
     Indication: HYPERLIPIDAEMIA
  2. LIPITOR [Concomitant]
     Active Substance: ATORVASTATIN CALCIUM
     Indication: HYPERCHOLESTEROLAEMIA
     Dosage: 10 MG, QD
     Dates: start: 2010
  3. GLIMEPIRIDE. [Concomitant]
     Active Substance: GLIMEPIRIDE
     Indication: TYPE 2 DIABETES MELLITUS
     Dosage: 2 MG, QD
     Dates: start: 2013
  4. IMDUR [Concomitant]
     Active Substance: ISOSORBIDE MONONITRATE
     Indication: MYOCARDIAL ISCHAEMIA
     Dosage: 120 MG, QD
     Dates: start: 2013
  5. REPATHA [Suspect]
     Active Substance: EVOLOCUMAB
     Indication: MYOCARDIAL ISCHAEMIA
     Dosage: 140 MG, UNK
     Route: 058
     Dates: start: 201704, end: 20180829
  6. TRAJENTA [Concomitant]
     Active Substance: LINAGLIPTIN
     Indication: TYPE 2 DIABETES MELLITUS
     Dosage: 5 MG, QD
     Dates: start: 2013
  7. PERHEXILINE [Concomitant]
     Active Substance: PERHEXILINE
     Indication: MYOCARDIAL ISCHAEMIA
     Dosage: 100 MG, QD
     Dates: start: 2014
  8. COPLAVIX [Concomitant]
     Active Substance: ASPIRIN\CLOPIDOGREL BISULFATE
     Indication: MYOCARDIAL ISCHAEMIA
     Dosage: 1 DF, QD
     Dates: start: 2010

REACTIONS (2)
  - Acute respiratory distress syndrome [Fatal]
  - Influenza [Fatal]

NARRATIVE: CASE EVENT DATE: 20180829
